FAERS Safety Report 18398651 (Version 1)
Quarter: 2020Q4

REPORT INFORMATION
  Report Type: Spontaneous
  Country: US (occurrence: US)
  Receive Date: 20201019
  Receipt Date: 20201019
  Transmission Date: 20210114
  Serious: Yes (Other)
  Sender: FDA-Public Use
  Company Number: US-BAYER-2020-219634

PATIENT
  Age: 66 Year
  Sex: Female

DRUGS (3)
  1. ASPIRIN (PAIN AND FEVER) [Suspect]
     Active Substance: ASPIRIN
     Dosage: UNK
  2. ALEVE [Suspect]
     Active Substance: NAPROXEN SODIUM
     Indication: NEURALGIA
     Dosage: 4 DF, QD
     Route: 048
     Dates: start: 202009
  3. ALEVE [Suspect]
     Active Substance: NAPROXEN SODIUM
     Indication: PAIN

REACTIONS (5)
  - Dizziness [Unknown]
  - Product prescribing issue [Unknown]
  - Incorrect dosage administered [Unknown]
  - Rectal haemorrhage [None]
  - Hunger [Unknown]

NARRATIVE: CASE EVENT DATE: 2019
